FAERS Safety Report 9775445 (Version 1)
Quarter: 2013Q4

REPORT INFORMATION
  Report Type: Spontaneous
  Country: SE (occurrence: SE)
  Receive Date: 20131220
  Receipt Date: 20131220
  Transmission Date: 20140711
  Serious: Yes (Hospitalization, Other)
  Sender: FDA-Public Use
  Company Number: SE-PFIZER INC-2013362135

PATIENT
  Age: 43 Year
  Sex: Female

DRUGS (10)
  1. LYRICA [Suspect]
     Dosage: 550 MG, UNK
     Dates: end: 20130909
  2. METHOTREXATE TEVA [Concomitant]
     Indication: RHEUMATOID ARTHRITIS
     Dosage: 2.5 MG, UNK
     Route: 048
     Dates: start: 20130312
  3. TARGINIQ [Concomitant]
     Indication: PAIN
     Dosage: 2 DEPO TABLETS TWICE DAILY
     Dates: start: 20130624
  4. PANODIL FORTE [Concomitant]
     Indication: PAIN
     Dosage: 1 G, 3X/DAY
     Dates: start: 20130624
  5. ZOPICLONE MYLAN [Concomitant]
     Dosage: 7.5 MG, 1X/DAY
     Dates: start: 20130626
  6. PULMICORT TURBUHALER [Concomitant]
     Dosage: 400 UG, 1-2 INHALATIONS 2X/DAY
     Route: 055
     Dates: start: 20130212
  7. MOVICOL [Concomitant]
     Dosage: 1 DOSE, AS NEEDED
     Route: 048
     Dates: start: 20130807
  8. SUMATRIPTAN SANDOZ [Concomitant]
     Indication: MIGRAINE
     Dosage: 50 MG AS NEEDED
     Dates: start: 20130122
  9. VENTOLINE DISKUS [Concomitant]
     Dosage: 0.2 MG, 1- 2 INHALTATIONS
     Route: 055
     Dates: start: 20130212
  10. OXYNORM [Concomitant]
     Dosage: UNK

REACTIONS (6)
  - Dysarthria [Unknown]
  - Balance disorder [Unknown]
  - Road traffic accident [Unknown]
  - Musculoskeletal disorder [Unknown]
  - Spinal disorder [Unknown]
  - Pain [Unknown]
